FAERS Safety Report 6716774-0 (Version None)
Quarter: 2010Q2

REPORT INFORMATION
  Report Type: 
  Country: None (occurrence: None)
  Receive Date: 20100510
  Receipt Date: 20100426
  Transmission Date: 20101027
  Serious: Yes (Other)
  Sender: FDA-Public Use
  Company Number: ES-RANBAXY-2010RR-32949

PATIENT
  Age: 41 Year
  Sex: Male

DRUGS (1)
  1. LORAZEPAM [Suspect]
     Indication: SUICIDE ATTEMPT

REACTIONS (10)
  - BLISTER [None]
  - COMA [None]
  - COMA BLISTER [None]
  - DISORIENTATION [None]
  - HYPERHIDROSIS [None]
  - NECROSIS [None]
  - OVERDOSE [None]
  - SUICIDE ATTEMPT [None]
  - SWEAT GLAND DISORDER [None]
  - TACHYCARDIA [None]
